FAERS Safety Report 9531849 (Version 1)
Quarter: 2013Q3

REPORT INFORMATION
  Report Type: Spontaneous
  Country: US (occurrence: US)
  Receive Date: 20130918
  Receipt Date: 20130918
  Transmission Date: 20140515
  Serious: No
  Sender: FDA-Public Use
  Company Number: US-PFIZER INC-2013268857

PATIENT
  Age: 50 Year
  Sex: Female
  Weight: 100.68 kg

DRUGS (3)
  1. LYRICA [Suspect]
     Indication: DIABETIC NEUROPATHY
     Dosage: 150 MG, 2X/DAY
     Route: 048
     Dates: start: 201307, end: 20130913
  2. TRAMADOL [Concomitant]
     Indication: ANALGESIC THERAPY
     Dosage: UNK
  3. ROBAXIN [Concomitant]
     Dosage: UNK

REACTIONS (3)
  - Muscle spasms [Not Recovered/Not Resolved]
  - Pain [Not Recovered/Not Resolved]
  - Diabetic neuropathy [Not Recovered/Not Resolved]
